FAERS Safety Report 5792522-6 (Version None)
Quarter: 2008Q2

REPORT INFORMATION
  Report Type: 
  Country: None (occurrence: None)
  Receive Date: 20080626
  Receipt Date: 20080623
  Transmission Date: 20081010
  Serious: Yes (Other)
  Sender: FDA-Public Use
  Company Number: DE-MERCK-0804DEU00009

PATIENT
  Age: 17 Month
  Sex: Female

DRUGS (1)
  1. SINGULAIR [Suspect]
     Indication: BRONCHITIS CHRONIC
     Route: 048
     Dates: start: 20080301, end: 20080308

REACTIONS (6)
  - ALLERGIC GRANULOMATOUS ANGIITIS [None]
  - BRONCHITIS CHRONIC [None]
  - FALL [None]
  - GAIT DISTURBANCE [None]
  - OFF LABEL USE [None]
  - SWELLING FACE [None]
